FAERS Safety Report 26143099 (Version 2)
Quarter: 2025Q4

REPORT INFORMATION
  Report Type: Report from Study
  Country: CA (occurrence: CA)
  Receive Date: 20251211
  Receipt Date: 20251223
  Transmission Date: 20260118
  Serious: Yes (Death)
  Sender: ALEXION PHARMACEUTICALS
  Company Number: CA-AstraZeneca-CH-01010471A

PATIENT
  Age: 66 Year
  Sex: Male

DRUGS (9)
  1. OSIMERTINIB [Suspect]
     Active Substance: OSIMERTINIB
     Indication: Small cell lung cancer metastatic
     Route: 061
     Dates: start: 20250711
  2. DEXAMETHASONE [Concomitant]
     Active Substance: DEXAMETHASONE
     Dosage: 4 MILLIGRAM
     Route: 065
  3. ZOFRAN [Concomitant]
     Active Substance: ONDANSETRON HYDROCHLORIDE
     Dosage: 8 MILLIGRAM
     Route: 065
  4. OLANZAPINE [Concomitant]
     Active Substance: OLANZAPINE
     Route: 065
  5. FOLIC ACID [Concomitant]
     Active Substance: FOLIC ACID
     Route: 065
  6. DILAUDID [Concomitant]
     Active Substance: HYDROMORPHONE HYDROCHLORIDE
     Route: 065
  7. HYDROMORPHONE [Concomitant]
     Active Substance: HYDROMORPHONE
     Dosage: 4 MILLIGRAM
     Route: 065
  8. SENOKOT [Concomitant]
     Active Substance: SENNOSIDES
     Route: 065
  9. LACTULOSE [Concomitant]
     Active Substance: LACTULOSE
     Route: 065

REACTIONS (1)
  - Death [Fatal]

NARRATIVE: CASE EVENT DATE: 20250809
